FAERS Safety Report 22048405 (Version 1)
Quarter: 2023Q1

REPORT INFORMATION
  Report Type: Spontaneous
  Country: US (occurrence: US)
  Receive Date: 20230301
  Receipt Date: 20230301
  Transmission Date: 20230417
  Serious: Yes (Hospitalization, Other)
  Sender: FDA-Public Use
  Company Number: US-Accord-302383

PATIENT
  Age: 75 Year
  Sex: Female

DRUGS (2)
  1. METOPROLOL [Suspect]
     Active Substance: METOPROLOL
     Indication: Atrial fibrillation
     Dosage: IMMEDIATELY STOPPED THEN REDUCED DOSE WAS RESUMED WHILE DISCHARGE
  2. DILTIAZEM [Suspect]
     Active Substance: DILTIAZEM
     Indication: Atrial fibrillation
     Dosage: IMMEDIATELY STOPPED THEN IT WAS RESUMED IN A STEPWISE MANNER

REACTIONS (1)
  - BRASH syndrome [Recovering/Resolving]
